FAERS Safety Report 19442913 (Version 1)
Quarter: 2021Q2

REPORT INFORMATION
  Report Type: Spontaneous
  Country: US (occurrence: US)
  Receive Date: 20210618
  Receipt Date: 20210618
  Transmission Date: 20210717
  Serious: Yes (Hospitalization)
  Sender: FDA-Public Use
  Company Number: None

PATIENT
  Age: 65 Year
  Sex: Female

DRUGS (19)
  1. METHOCARBAMOL. [Concomitant]
     Active Substance: METHOCARBAMOL
  2. ATORVASTATIN [Concomitant]
     Active Substance: ATORVASTATIN
  3. SIMETHICONE (DIMETHICONE) [Concomitant]
     Active Substance: DIMETHICONE
  4. BUMETANIDE. [Concomitant]
     Active Substance: BUMETANIDE
  5. ATORVASTATIN [Concomitant]
     Active Substance: ATORVASTATIN
  6. METOLAZONE. [Concomitant]
     Active Substance: METOLAZONE
  7. VENLAFAXINE [Concomitant]
     Active Substance: VENLAFAXINE HYDROCHLORIDE
  8. PANTOPRAZOLE [Concomitant]
     Active Substance: PANTOPRAZOLE
  9. GLIPIZIDE. [Concomitant]
     Active Substance: GLIPIZIDE
  10. OPSUMIT [Suspect]
     Active Substance: MACITENTAN
     Indication: PULMONARY HYPERTENSION
     Route: 048
     Dates: start: 20201009
  11. TRAMADOL. [Concomitant]
     Active Substance: TRAMADOL
  12. CARVEDILOL. [Concomitant]
     Active Substance: CARVEDILOL
  13. TADALAFIL. [Concomitant]
     Active Substance: TADALAFIL
  14. AMLODIPINE [Concomitant]
     Active Substance: AMLODIPINE BESYLATE
  15. RENVELA [Concomitant]
     Active Substance: SEVELAMER CARBONATE
  16. CALCIUM ACETATE. [Concomitant]
     Active Substance: CALCIUM ACETATE
  17. CYCLOBENZAPRINE. [Concomitant]
     Active Substance: CYCLOBENZAPRINE
  18. ALBUTEROL HFA [Concomitant]
     Active Substance: ALBUTEROL SULFATE
  19. ASPIRIN. [Concomitant]
     Active Substance: ASPIRIN

REACTIONS (2)
  - Gastrointestinal haemorrhage [None]
  - Anaemia [None]

NARRATIVE: CASE EVENT DATE: 20210615
